FAERS Safety Report 22643205 (Version 9)
Quarter: 2024Q4

REPORT INFORMATION
  Report Type: Report from Study
  Country: US (occurrence: US)
  Receive Date: 20230627
  Receipt Date: 20241111
  Transmission Date: 20250114
  Serious: Yes (Other)
  Sender: NOVARTIS
  Company Number: US-002147023-NVSC2023US144836

PATIENT
  Age: 47 Year
  Sex: Female

DRUGS (1)
  1. KESIMPTA [Suspect]
     Active Substance: OFATUMUMAB
     Indication: Relapsing multiple sclerosis
     Dosage: 20 MG, QMO
     Route: 058
     Dates: start: 20230617

REACTIONS (9)
  - Ankylosing spondylitis [Unknown]
  - Arthritis [Recovered/Resolved with Sequelae]
  - Back pain [Unknown]
  - Exercise tolerance decreased [Unknown]
  - Emotional distress [Unknown]
  - Headache [Unknown]
  - Insomnia [Unknown]
  - Product supply issue [Unknown]
  - Weight decreased [Unknown]

NARRATIVE: CASE EVENT DATE: 20230623
